FAERS Safety Report 25534988 (Version 2)
Quarter: 2025Q3

REPORT INFORMATION
  Report Type: Spontaneous
  Country: EU (occurrence: EU)
  Receive Date: 20250709
  Receipt Date: 20250724
  Transmission Date: 20251020
  Serious: Yes (Death, Life-Threatening)
  Sender: MERCK SHARP & DOHME LLC
  Company Number: None

PATIENT
  Age: 88 Year
  Sex: Male
  Weight: 81 kg

DRUGS (9)
  1. KEYTRUDA [Suspect]
     Active Substance: PEMBROLIZUMAB
     Indication: Metastatic malignant melanoma
     Route: 042
     Dates: start: 20250218, end: 20250218
  2. Nebol [Concomitant]
     Route: 048
  3. OLMESARTAN MEDOXOMIL [Concomitant]
     Active Substance: OLMESARTAN MEDOXOMIL
     Route: 048
     Dates: start: 20250305
  4. HYDROCORTISONE (GENERIC) [Concomitant]
     Route: 042
     Dates: start: 20250326, end: 20250326
  5. BUSCOPAN (G) [Concomitant]
     Dosage: AS REQUIRED
     Route: 048
     Dates: start: 20250305
  6. Paralief 500mg Tablets [Concomitant]
     Dosage: 500MG, AS REQUIRED
     Route: 048
     Dates: start: 20250305
  7. CHLORPHENIRAMINE MALEATE [Concomitant]
     Active Substance: CHLORPHENIRAMINE MALEATE
     Route: 042
     Dates: start: 20250326, end: 20250326
  8. LERCANIDIPINE HYDROCHLORIDE [Concomitant]
     Active Substance: LERCANIDIPINE HYDROCHLORIDE
     Route: 048
     Dates: start: 20250305
  9. OLANZAPINE [Concomitant]
     Active Substance: OLANZAPINE
     Indication: Confusional state
     Dates: start: 20250423

REACTIONS (2)
  - Myocarditis-myositis-myasthenia gravis overlap syndrome [Fatal]
  - Autoimmune hepatitis [Fatal]

NARRATIVE: CASE EVENT DATE: 20250301
